FAERS Safety Report 5758235-1 (Version None)
Quarter: 2008Q2

REPORT INFORMATION
  Report Type: 
  Country: None (occurrence: None)
  Receive Date: 20080604
  Receipt Date: 20080526
  Transmission Date: 20081010
  Serious: Yes (Hospitalization, Other)
  Sender: FDA-Public Use
  Company Number: DE-TEVA-172120ISR

PATIENT
  Age: 63 Year
  Sex: Female

DRUGS (2)
  1. METHOTREXATE [Suspect]
     Indication: RHEUMATOID ARTHRITIS
     Route: 048
     Dates: start: 19950101
  2. CORTICOIDS [Suspect]
     Indication: RHEUMATOID ARTHRITIS

REACTIONS (2)
  - BRONCHOPULMONARY ASPERGILLOSIS [None]
  - TUBERCULOSIS [None]
